FAERS Safety Report 5695000-8 (Version None)
Quarter: 2008Q2

REPORT INFORMATION
  Report Type: 
  Country: None (occurrence: None)
  Receive Date: 20080404
  Receipt Date: 20080325
  Transmission Date: 20081010
  Serious: Yes (Other)
  Sender: FDA-Public Use
  Company Number: US-PFIZER INC-2007101644

PATIENT
  Sex: Female
  Weight: 63.636 kg

DRUGS (5)
  1. LYRICA [Suspect]
     Indication: FIBROMYALGIA
     Route: 048
     Dates: start: 20070703, end: 20071129
  2. AMBIEN [Concomitant]
     Indication: INSOMNIA
  3. CELEBREX [Concomitant]
     Indication: FIBROMYALGIA
  4. CITALOPRAM HYDROBROMIDE [Concomitant]
     Indication: DEPRESSION
  5. DRUG, UNSPECIFIED [Concomitant]
     Indication: DRY EYE

REACTIONS (6)
  - DYSPEPSIA [None]
  - IMPAIRED DRIVING ABILITY [None]
  - NECK PAIN [None]
  - PAIN [None]
  - VISION BLURRED [None]
  - WEIGHT DECREASED [None]
